FAERS Safety Report 20064645 (Version 1)
Quarter: 2021Q4

REPORT INFORMATION
  Report Type: Spontaneous
  Country: JP (occurrence: JP)
  Receive Date: 20211112
  Receipt Date: 20211112
  Transmission Date: 20220303
  Serious: Yes (Other)
  Sender: FDA-Public Use
  Company Number: JP-MYOVANT SCIENCES GMBH-2021MYSCI1100168

PATIENT
  Age: 39 Year
  Sex: Female

DRUGS (1)
  1. RELUGOLIX [Suspect]
     Active Substance: RELUGOLIX
     Indication: Congenital uterine anomaly
     Dosage: UNK
     Route: 048

REACTIONS (2)
  - Asherman^s syndrome [Unknown]
  - Off label use [Unknown]
